FAERS Safety Report 16843712 (Version 1)
Quarter: 2019Q3

REPORT INFORMATION
  Report Type: Spontaneous
  Country: US (occurrence: US)
  Receive Date: 20190924
  Receipt Date: 20190924
  Transmission Date: 20191005
  Serious: Yes (Death, Hospitalization, Other)
  Sender: FDA-Public Use
  Company Number: US-OREXO US, INC.-ORE201909-000098

PATIENT
  Age: 31 Year
  Sex: Male

DRUGS (5)
  1. AMPHETAMINES [Suspect]
     Active Substance: AMPHETAMINE
  2. PHENIBUT [Suspect]
     Active Substance: DIETARY SUPPLEMENT
  3. CLONAZEPAM. [Suspect]
     Active Substance: CLONAZEPAM
  4. BUPRENORPHINE / NALOXONE [Suspect]
     Active Substance: BUPRENORPHINE\NALOXONE
  5. COCAINE [Suspect]
     Active Substance: COCAINE

REACTIONS (5)
  - Purpura fulminans [Unknown]
  - Drug abuse [Unknown]
  - Unresponsive to stimuli [Unknown]
  - Multiple organ dysfunction syndrome [Fatal]
  - Endocarditis [Unknown]
